FAERS Safety Report 7826383-8 (Version None)
Quarter: 2011Q4

REPORT INFORMATION
  Report Type: 
  Country: None (occurrence: None)
  Receive Date: 20111020
  Receipt Date: 20111014
  Transmission Date: 20120403
  Serious: No
  Sender: FDA-Public Use
  Company Number: US-BIOGENIDEC-2011BI039447

PATIENT
  Age: 40 Year
  Sex: Female

DRUGS (4)
  1. FENTANYL [Concomitant]
     Indication: PAIN
     Route: 061
  2. OXYCODONE HCL [Concomitant]
     Indication: PAIN
  3. TYSABRI [Suspect]
     Indication: MULTIPLE SCLEROSIS
     Route: 042
     Dates: start: 20110201
  4. BACLOFEN [Concomitant]
     Indication: MUSCLE SPASTICITY

REACTIONS (1)
  - PAIN [None]
